FAERS Safety Report 10045022 (Version 2)
Quarter: 2014Q1

REPORT INFORMATION
  Report Type: Report from Study
  Country: US (occurrence: US)
  Receive Date: 20140328
  Receipt Date: 20140328
  Transmission Date: 20141002
  Serious: Yes (Other)
  Sender: FDA-Public Use
  Company Number: US-SANOFI-AVENTIS-2013SA087109

PATIENT
  Age: 59 Year
  Sex: Female
  Weight: 65.31 kg

DRUGS (4)
  1. AUBAGIO [Suspect]
     Indication: MULTIPLE SCLEROSIS
     Route: 048
     Dates: start: 20131115
  2. AUBAGIO [Suspect]
     Indication: MULTIPLE SCLEROSIS
     Route: 048
     Dates: start: 20130123
  3. AUBAGIO [Suspect]
     Indication: MULTIPLE SCLEROSIS
     Route: 048
  4. TOPIRAMATE [Concomitant]
     Route: 048

REACTIONS (17)
  - Dementia [Not Recovered/Not Resolved]
  - Blood homocysteine increased [Unknown]
  - Immune system disorder [Unknown]
  - Depression [Unknown]
  - Hypoaesthesia [Unknown]
  - Ataxia [Unknown]
  - Amnesia [Unknown]
  - Anxiety disorder [Unknown]
  - Akathisia [Unknown]
  - Fatigue [Unknown]
  - Pain [Unknown]
  - Amaurosis [Not Recovered/Not Resolved]
  - Crying [Not Recovered/Not Resolved]
  - Headache [Not Recovered/Not Resolved]
  - Paraesthesia [Unknown]
  - Diarrhoea [Not Recovered/Not Resolved]
  - Drug dose omission [Unknown]
